FAERS Safety Report 6791356-3 (Version None)
Quarter: 2010Q2

REPORT INFORMATION
  Report Type: 
  Country: None (occurrence: None)
  Receive Date: 20100618
  Receipt Date: 20100611
  Transmission Date: 20101027
  Serious: Yes (Hospitalization, Other)
  Sender: FDA-Public Use
  Company Number: 2010SP003964

PATIENT
  Age: 43 Year
  Sex: Female
  Weight: 83.9154 kg

DRUGS (3)
  1. NUVARING [Suspect]
     Indication: CONTRACEPTION
     Dosage: ; VAG
     Route: 067
     Dates: start: 20090322, end: 20090918
  2. TOPROL-XL [Suspect]
     Indication: DRUG USE FOR UNKNOWN INDICATION
     Dates: end: 20091013
  3. MULTI-VITAMIN [Concomitant]

REACTIONS (13)
  - BLOOD TRIGLYCERIDES INCREASED [None]
  - CARDIAC ANEURYSM [None]
  - CHEST PAIN [None]
  - EMBOLISM [None]
  - ESSENTIAL HYPERTENSION [None]
  - FALL [None]
  - GRIP STRENGTH DECREASED [None]
  - HYPERTENSION [None]
  - ISCHAEMIC CEREBRAL INFARCTION [None]
  - SKIN DISCOLOURATION [None]
  - SKIN LESION [None]
  - THROMBOSIS [None]
  - THROMBOTIC CEREBRAL INFARCTION [None]
